FAERS Safety Report 21672342 (Version 1)
Quarter: 2022Q4

REPORT INFORMATION
  Report Type: Spontaneous
  Country: US (occurrence: US)
  Receive Date: 20221202
  Receipt Date: 20221202
  Transmission Date: 20230113
  Serious: Yes (Other)
  Sender: FDA-Public Use
  Company Number: US-009507513-2212USA000816

PATIENT
  Age: 75 Year
  Sex: Male

DRUGS (4)
  1. ZEPATIER [Interacting]
     Active Substance: ELBASVIR\GRAZOPREVIR
     Indication: Hepatitis C
     Dosage: UNK
     Route: 048
  2. APIXABAN [Interacting]
     Active Substance: APIXABAN
     Dosage: 5 MG TWICE DAILY
  3. ASPIRIN [Concomitant]
     Active Substance: ASPIRIN
     Dosage: LESS OR EQUAL THAN 81 MG/DAY
  4. CLOPIDOGREL [Concomitant]
     Active Substance: CLOPIDOGREL BISULFATE

REACTIONS (2)
  - Haemorrhage [Unknown]
  - Drug interaction [Unknown]
